FAERS Safety Report 9254247 (Version 1)
Quarter: 2013Q2

REPORT INFORMATION
  Report Type: Report from Study
  Country: HU (occurrence: HU)
  Receive Date: 20130425
  Receipt Date: 20130425
  Transmission Date: 20140414
  Serious: Yes (Death, Other)
  Sender: FDA-Public Use
  Company Number: PHHY2012HU114612

PATIENT
  Age: 78 Year
  Sex: Female
  Weight: 78 kg

DRUGS (10)
  1. FEMARA [Suspect]
     Indication: BREAST CANCER
     Dosage: 2.5 MG, QD
     Route: 048
     Dates: start: 200902, end: 20100809
  2. SYNCUMAR [Suspect]
     Dosage: UNK UKN, UNK
     Dates: start: 2000
  3. DIGOXIN [Concomitant]
     Dosage: UNK UKN, DAILY
     Dates: start: 2000
  4. CONCOR [Concomitant]
     Dosage: 5 MG, UNK
     Dates: start: 2000
  5. DIAPHYLLIN [Concomitant]
     Dosage: UNK UKN, UNK
  6. HYGROTON [Concomitant]
     Dosage: UNK UKN, UNK
  7. COVEREX [Concomitant]
     Dosage: UNK UKN, UNK
  8. DETRALEX [Concomitant]
     Dosage: UNK UKN, UNK
  9. AROMASIN [Concomitant]
     Dosage: UNK UKN, UNK
  10. SIMVOR [Concomitant]
     Dosage: UNK UKN, UNK

REACTIONS (6)
  - Breast cancer [Fatal]
  - Metastases to liver [Fatal]
  - Malignant neoplasm progression [Fatal]
  - Gastrointestinal haemorrhage [Unknown]
  - Gastric ulcer [Unknown]
  - General physical health deterioration [Unknown]
